FAERS Safety Report 9496392 (Version 2)
Quarter: 2013Q3

REPORT INFORMATION
  Report Type: Spontaneous
  Country: BE (occurrence: BE)
  Receive Date: 20130904
  Receipt Date: 20130904
  Transmission Date: 20140515
  Serious: Yes (Other)
  Sender: FDA-Public Use
  Company Number: BE-JNJFOC-EMADSS2001007098

PATIENT
  Age: 7 Year
  Sex: Male
  Weight: 20 kg

DRUGS (1)
  1. VERMOX [Suspect]
     Indication: ASCARIASIS
     Route: 064

REACTIONS (3)
  - Hypodontia [Recovered/Resolved with Sequelae]
  - Scrotal disorder [Recovered/Resolved with Sequelae]
  - Congenital hydrocephalus [Recovered/Resolved with Sequelae]
